FAERS Safety Report 14509176 (Version 2)
Quarter: 2018Q2

REPORT INFORMATION
  Report Type: Spontaneous
  Country: JP (occurrence: JP)
  Receive Date: 20180209
  Receipt Date: 20180404
  Transmission Date: 20180711
  Serious: Yes (Hospitalization, Other)
  Sender: FDA-Public Use
  Company Number: JP-BRISTOL-MYERS SQUIBB COMPANY-BMS-2017-074360

PATIENT
  Age: 73 Year
  Sex: Male

DRUGS (1)
  1. OPDIVO [Suspect]
     Active Substance: NIVOLUMAB
     Indication: HEAD AND NECK CANCER METASTATIC
     Dosage: 3 MG/KG, QD
     Route: 041
     Dates: start: 20170725, end: 20170725

REACTIONS (6)
  - Varicella [Recovered/Resolved]
  - Haemorrhage subcutaneous [Recovered/Resolved]
  - Rheumatoid arthritis [Unknown]
  - Pneumonia aspiration [Unknown]
  - Oedema peripheral [Recovered/Resolved]
  - Pyrexia [Recovered/Resolved]

NARRATIVE: CASE EVENT DATE: 20170731
